FAERS Safety Report 7264415-9 (Version None)
Quarter: 2011Q1

REPORT INFORMATION
  Report Type: 
  Country: None (occurrence: None)
  Receive Date: 20110131
  Receipt Date: 20110119
  Transmission Date: 20110831
  Serious: Yes (Other)
  Sender: FDA-Public Use
  Company Number: BR-AMGEN-BRASP2011005118

PATIENT
  Age: 53 Year
  Sex: Female

DRUGS (2)
  1. ENBREL [Suspect]
     Indication: PRODUCT USED FOR UNKNOWN INDICATION
     Dosage: UNK
     Route: 058
     Dates: start: 20110105
  2. NOTUSS                             /01418201/ [Suspect]
     Indication: THROAT IRRITATION
     Dosage: UNK
     Route: 048
     Dates: start: 20110116

REACTIONS (5)
  - THROAT IRRITATION [None]
  - INFLUENZA [None]
  - ERYTHEMA [None]
  - PRURITUS [None]
  - HYPERSENSITIVITY [None]
